FAERS Safety Report 18620142 (Version 3)
Quarter: 2021Q1

REPORT INFORMATION
  Report Type: Report from Study
  Country: US (occurrence: US)
  Receive Date: 20201215
  Receipt Date: 20210203
  Transmission Date: 20210419
  Serious: No
  Sender: FDA-Public Use
  Company Number: NVSC2020US327674

PATIENT
  Sex: Female

DRUGS (1)
  1. COSENTYX [Suspect]
     Active Substance: SECUKINUMAB
     Indication: PRODUCT USED FOR UNKNOWN INDICATION
     Dosage: UNK
     Route: 065
     Dates: end: 202009

REACTIONS (4)
  - Drug ineffective [Not Recovered/Not Resolved]
  - Needle issue [Not Recovered/Not Resolved]
  - Anxiety [Unknown]
  - Device difficult to use [Unknown]
